FAERS Safety Report 12721567 (Version 1)
Quarter: 2016Q3

REPORT INFORMATION
  Report Type: Other
  Country: US (occurrence: US)
  Receive Date: 20160907
  Receipt Date: 20160907
  Transmission Date: 20161109
  Serious: No
  Sender: FDA-Public Use
  Company Number: US-COL_22158_2016

PATIENT
  Sex: Female

DRUGS (1)
  1. COLGATE TOTAL DAILY REPAIR [Suspect]
     Active Substance: SODIUM FLUORIDE\TRICLOSAN
     Indication: ACNE
     Dosage: A GENEROUS AMOUNT/ONCE/
     Route: 061
     Dates: start: 201602, end: 201602

REACTIONS (8)
  - Off label use [Recovering/Resolving]
  - Scab [Recovering/Resolving]
  - Application site burn [None]
  - Application site scab [None]
  - Skin disorder [Recovering/Resolving]
  - Skin burning sensation [Recovering/Resolving]
  - Oral herpes [Recovering/Resolving]
  - Product use issue [None]

NARRATIVE: CASE EVENT DATE: 201602
